FAERS Safety Report 5766078-8 (Version None)
Quarter: 2008Q2

REPORT INFORMATION
  Report Type: 
  Country: None (occurrence: None)
  Receive Date: 20080611
  Receipt Date: 20080521
  Transmission Date: 20081010
  Serious: Yes (Hospitalization)
  Sender: FDA-Public Use
  Company Number: DE-AVENTIS-200814762GDDC

PATIENT
  Age: 63 Year
  Sex: Male

DRUGS (4)
  1. GLYBURIDE [Suspect]
     Dates: end: 20030404
  2. METFORMIN HCL [Suspect]
     Dates: end: 20030404
  3. TRANDOLAPRIL [Concomitant]
  4. EUTHYROX [Concomitant]

REACTIONS (1)
  - GRANULOMATOUS LIVER DISEASE [None]
